FAERS Safety Report 4459675-3 (Version None)
Quarter: 2004Q3

REPORT INFORMATION
  Report Type: 
  Country: None (occurrence: None)
  Receive Date: 20040923
  Receipt Date: 20040913
  Transmission Date: 20050211
  Serious: Yes (Death, Hospitalization, Other)
  Sender: FDA-Public Use
  Company Number: US-JNJFOC-20040903456

PATIENT
  Age: 75 Year
  Sex: Male

DRUGS (1)
  1. EXTRA STRENGTH TYLENOL [Suspect]
     Indication: PANCREATITIS
     Dosage: 15-20G DAILY

REACTIONS (13)
  - ABDOMINAL PAIN [None]
  - ANURIA [None]
  - BLOOD BICARBONATE DECREASED [None]
  - BLOOD CREATINE INCREASED [None]
  - BLOOD LACTIC ACID INCREASED [None]
  - BLOOD PH DECREASED [None]
  - BLOOD UREA INCREASED [None]
  - COMA [None]
  - GENERAL PHYSICAL HEALTH DETERIORATION [None]
  - PCO2 DECREASED [None]
  - PO2 INCREASED [None]
  - SELF-MEDICATION [None]
  - WHITE BLOOD CELL COUNT INCREASED [None]
